FAERS Safety Report 9827060 (Version 1)
Quarter: 2013Q4

REPORT INFORMATION
  Report Type: Spontaneous
  Country: US (occurrence: None)
  Receive Date: 20131120
  Receipt Date: 20131120
  Transmission Date: 20140711
  Serious: Yes (Other)
  Sender: FDA-Public Use
  Company Number: US-JNJFOC-20130611083

PATIENT
  Sex: 0

DRUGS (2)
  1. EVITHROM [Suspect]
     Indication: HAEMOSTASIS
     Dosage: UNKNOWN
  2. UNSPECIFIED [Suspect]
     Indication: HAEMOSTASIS
     Dosage: TOPICAL
     Route: 061

REACTIONS (1)
  - Drug ineffective [None]
